FAERS Safety Report 14937156 (Version 1)
Quarter: 2018Q2

REPORT INFORMATION
  Report Type: Spontaneous
  Country: None (occurrence: IT)
  Receive Date: 20180525
  Receipt Date: 20180525
  Transmission Date: 20180711
  Serious: Yes (Other)
  Sender: FDA-Public Use
  Company Number: IT-BAXTER-2018BAX014916

PATIENT
  Sex: Female

DRUGS (3)
  1. VEPESID [Suspect]
     Active Substance: ETOPOSIDE
     Indication: OVARIAN CANCER
     Dosage: 100 MG/M2 (DAY 1, 2, 3), Q3WK
     Route: 042
  2. DOXORUBICIN [Suspect]
     Active Substance: DOXORUBICIN
     Indication: OVARIAN CANCER
     Dosage: 40 MG/M2, DAY 1, Q3WK
     Route: 042
  3. ENDOXAN BAXTER [Suspect]
     Active Substance: CYCLOPHOSPHAMIDE
     Indication: OVARIAN CANCER
     Dosage: 500 MG/M2, DAY 1, Q3WK
     Route: 042

REACTIONS (1)
  - Cerebrovascular accident [Unknown]
